FAERS Safety Report 6372172-3 (Version None)
Quarter: 2009Q3

REPORT INFORMATION
  Report Type: 
  Country: None (occurrence: None)
  Receive Date: 20090917
  Receipt Date: 20090904
  Transmission Date: 20100115
  Serious: Yes (Other)
  Sender: FDA-Public Use
  Company Number: ADR17532009

PATIENT
  Age: 32 Year
  Sex: Female

DRUGS (1)
  1. CITALOPRAM, 20MG (MFR: UNKNOWN) [Suspect]
     Indication: DEPRESSION
     Dosage: 20 MG, 1/1DAY ORAL
     Route: 048
     Dates: start: 20050301, end: 20061001

REACTIONS (4)
  - DIZZINESS [None]
  - SYNCOPE [None]
  - VERTIGO [None]
  - WITHDRAWAL SYNDROME [None]
